FAERS Safety Report 9128250 (Version 1)
Quarter: 2013Q1

REPORT INFORMATION
  Report Type: Spontaneous
  Country: ES (occurrence: ES)
  Receive Date: 20130125
  Receipt Date: 20130125
  Transmission Date: 20140127
  Serious: Yes (Other)
  Sender: FDA-Public Use
  Company Number: ES-PFIZER INC-2013033334

PATIENT
  Age: 42 Year
  Sex: Male

DRUGS (1)
  1. CHAMPIX [Suspect]
     Indication: TOBACCO ABUSE
     Dosage: UNK
     Route: 048
     Dates: start: 20121010, end: 20121128

REACTIONS (1)
  - Rectal haemorrhage [Unknown]
